FAERS Safety Report 8308985-8 (Version None)
Quarter: 2012Q1

REPORT INFORMATION
  Report Type: 
  Country: None (occurrence: None)
  Receive Date: 20120327
  Receipt Date: 20110120
  Transmission Date: 20120608
  Serious: Yes (Other)
  Sender: FDA-Public Use
  Company Number: PHHY2011US05339

PATIENT
  Sex: Male

DRUGS (1)
  1. GLEEVEC [Suspect]
     Dosage: 400 MG, QD, ORAL
     Route: 048

REACTIONS (3)
  - SKIN HAEMORRHAGE [None]
  - CONTUSION [None]
  - SKIN ATROPHY [None]
